FAERS Safety Report 17553171 (Version 1)
Quarter: 2020Q1

REPORT INFORMATION
  Report Type: Report from Study
  Country: DE (occurrence: DE)
  Receive Date: 20200317
  Receipt Date: 20200317
  Transmission Date: 20200409
  Serious: Yes (Other)
  Sender: FDA-Public Use
  Company Number: NVSC2020DE075480

PATIENT
  Sex: Male
  Weight: 94 kg

DRUGS (28)
  1. COSENTYX [Suspect]
     Active Substance: SECUKINUMAB
     Dosage: 150 MG, (ONCE)
     Route: 065
     Dates: start: 20180108, end: 20180108
  2. COSENTYX [Suspect]
     Active Substance: SECUKINUMAB
     Dosage: 150 MG, (ONCE)
     Route: 065
     Dates: start: 20180202, end: 20180202
  3. COSENTYX [Suspect]
     Active Substance: SECUKINUMAB
     Dosage: 150 MG, (ONCE)
     Route: 065
     Dates: start: 20180502, end: 20180502
  4. INDOMET [Concomitant]
     Dosage: 75 MG, QD
     Route: 048
     Dates: start: 20180503, end: 20181118
  5. RAMIPRIL. [Concomitant]
     Active Substance: RAMIPRIL
     Indication: HYPERTENSION
     Dosage: 7.5 MG, QD
     Route: 048
     Dates: start: 2015
  6. COSENTYX [Suspect]
     Active Substance: SECUKINUMAB
     Dosage: 150 MG, (ONCE)
     Route: 065
     Dates: start: 20171221, end: 20171221
  7. METHOTREXATE. [Concomitant]
     Active Substance: METHOTREXATE
     Dosage: 10 MG, QW
     Route: 048
     Dates: start: 20180503
  8. FOLIC [Concomitant]
     Active Substance: FOLIC ACID
     Indication: ANKYLOSING SPONDYLITIS
     Dosage: 5 MG, QW
     Route: 048
     Dates: start: 20171012
  9. DEKRISTOL [Concomitant]
     Active Substance: CHOLECALCIFEROL
     Indication: VITAMIN D DEFICIENCY
     Dosage: 20000 IU ( EVERY 14 DAYS )
     Route: 048
     Dates: start: 20171113
  10. COSENTYX [Suspect]
     Active Substance: SECUKINUMAB
     Dosage: 150 MG, (ONCE)
     Route: 065
     Dates: start: 20171102, end: 20171102
  11. COSENTYX [Suspect]
     Active Substance: SECUKINUMAB
     Dosage: 150 MG, (ONCE)
     Route: 065
     Dates: start: 20180302, end: 20180302
  12. COSENTYX [Suspect]
     Active Substance: SECUKINUMAB
     Dosage: 150 MG, (ONCE)
     Route: 065
     Dates: start: 20181002, end: 20181002
  13. COSENTYX [Suspect]
     Active Substance: SECUKINUMAB
     Dosage: 150 MG, (ONCE)
     Route: 065
     Dates: start: 20171123, end: 20171123
  14. COSENTYX [Suspect]
     Active Substance: SECUKINUMAB
     Dosage: 150 MG, (ONCE)
     Route: 065
     Dates: start: 20180402, end: 20180402
  15. COSENTYX [Suspect]
     Active Substance: SECUKINUMAB
     Dosage: 150 MG, (ONCE)
     Route: 065
     Dates: start: 20180602, end: 20180602
  16. COSENTYX [Suspect]
     Active Substance: SECUKINUMAB
     Dosage: 150 MG, (ONCE)
     Route: 065
     Dates: start: 20180702, end: 20180702
  17. COSENTYX [Suspect]
     Active Substance: SECUKINUMAB
     Dosage: 150 MG, (ONCE)
     Route: 065
     Dates: start: 20180802, end: 20180802
  18. COSENTYX [Suspect]
     Active Substance: SECUKINUMAB
     Dosage: 150 MG, (ONCE)
     Route: 065
     Dates: start: 20180902, end: 20180902
  19. METHOTREXATE. [Concomitant]
     Active Substance: METHOTREXATE
     Indication: ANKYLOSING SPONDYLITIS
     Dosage: 10 MG, QW
     Route: 048
     Dates: start: 20171012, end: 20180212
  20. INDOMET [Concomitant]
     Dosage: 50 MG, BID
     Route: 048
     Dates: start: 20171206, end: 20180502
  21. COSENTYX [Suspect]
     Active Substance: SECUKINUMAB
     Dosage: 150 MG, (ONCE)
     Route: 065
     Dates: start: 20171109, end: 20171109
  22. INDOMET [Concomitant]
     Indication: ANKYLOSING SPONDYLITIS
     Dosage: 75 MG, BID
     Route: 048
     Dates: start: 20090609, end: 20171112
  23. COSENTYX [Suspect]
     Active Substance: SECUKINUMAB
     Dosage: 150 MG, (ONCE)
     Route: 065
     Dates: start: 20171019, end: 20171019
  24. COSENTYX [Suspect]
     Active Substance: SECUKINUMAB
     Dosage: 150 MG, (ONCE)
     Route: 065
     Dates: start: 20171026, end: 20171026
  25. METHOTREXATE. [Concomitant]
     Active Substance: METHOTREXATE
     Dosage: 20 MG, QW
     Route: 048
     Dates: start: 20180213, end: 20180502
  26. COSENTYX [Suspect]
     Active Substance: SECUKINUMAB
     Indication: ANKYLOSING SPONDYLITIS
     Dosage: 150 MG, (ONCE)
     Route: 065
     Dates: start: 20171012, end: 20171012
  27. COSENTYX [Suspect]
     Active Substance: SECUKINUMAB
     Dosage: 150 MG, (ONCE)
     Route: 065
     Dates: start: 20171207, end: 20171207
  28. NOVAMINSULFON [Concomitant]
     Active Substance: METAMIZOLE
     Indication: ANKYLOSING SPONDYLITIS
     Dosage: 500 MG, BID (THE MORNING AND EVENING)
     Route: 048
     Dates: start: 20171113, end: 20171205

REACTIONS (3)
  - Back pain [Not Recovered/Not Resolved]
  - Inflammatory bowel disease [Not Recovered/Not Resolved]
  - Inflammatory bowel disease [Recovered/Resolved]

NARRATIVE: CASE EVENT DATE: 20180131
